FAERS Safety Report 11886523 (Version 1)
Quarter: 2016Q1

REPORT INFORMATION
  Report Type: Other
  Country: IN (occurrence: IN)
  Receive Date: 20160104
  Receipt Date: 20160104
  Transmission Date: 20160526
  Serious: Yes (Hospitalization)
  Sender: FDA-Public Use
  Company Number: IN-DEP_13331_2015

PATIENT
  Age: 30 Year
  Sex: Female

DRUGS (1)
  1. DICLOFENAC [Suspect]
     Active Substance: DICLOFENAC
     Indication: JOINT INJURY
     Dosage: DF
     Route: 030

REACTIONS (2)
  - Adverse drug reaction [Recovered/Resolved]
  - Acute febrile neutrophilic dermatosis [Recovered/Resolved]
